FAERS Safety Report 8217867-1 (Version None)
Quarter: 2012Q1

REPORT INFORMATION
  Report Type: 
  Country: None (occurrence: None)
  Receive Date: 20120319
  Receipt Date: 20120309
  Transmission Date: 20120608
  Serious: Yes (Other)
  Sender: FDA-Public Use
  Company Number: US-BAYER-2011-100962

PATIENT
  Age: 40 Year
  Sex: Female
  Weight: 68.027 kg

DRUGS (5)
  1. YASMIN [Suspect]
     Indication: CONTRACEPTION
  2. YASMIN [Suspect]
     Indication: ACNE
     Dosage: UNK
     Dates: start: 20040101, end: 20080101
  3. TRAMADOL HCL [Concomitant]
     Dosage: UNK UNK, PRN
  4. CYCLOBENZAPRINE HCL [Concomitant]
     Dosage: UNK UNK, PRN
  5. NAPROSYN [Concomitant]

REACTIONS (3)
  - PAIN [None]
  - GALLBLADDER DISORDER [None]
  - CHOLECYSTITIS CHRONIC [None]
